FAERS Safety Report 11004577 (Version 2)
Quarter: 2015Q2

REPORT INFORMATION
  Report Type: Spontaneous
  Country: TR (occurrence: TR)
  Receive Date: 20150409
  Receipt Date: 20150417
  Transmission Date: 20150821
  Serious: Yes (Other)
  Sender: FDA-Public Use
  Company Number: TR-ASTELLAS-2015US010666

PATIENT
  Age: 39 Year
  Sex: Female
  Weight: 65 kg

DRUGS (6)
  1. NEXIUM [Concomitant]
     Active Substance: ESOMEPRAZOLE MAGNESIUM
     Indication: PROPHYLAXIS
     Route: 048
     Dates: start: 201202
  2. MYFORTIC [Suspect]
     Active Substance: MYCOPHENOLATE SODIUM
     Indication: RENAL TRANSPLANT
     Dosage: 720MG MORNING AND 360MG EVENING,
     Route: 048
     Dates: start: 201202
  3. PREDNOL                            /00049601/ [Suspect]
     Active Substance: METHYLPREDNISOLONE
     Indication: RENAL TRANSPLANT
     Route: 048
     Dates: start: 201202
  4. LEVOTRON [Concomitant]
     Indication: HYPOTHYROIDISM
     Dosage: 3 DAY FULL, 3 DAY HALF TB, UNKNOWN FREQ.
     Route: 048
     Dates: start: 2004
  5. PROGRAF [Suspect]
     Active Substance: TACROLIMUS\TACROLIMUS ANHYDROUS
     Dosage: 1 MG MORNING, 0.5 MG EVENING
     Route: 048
     Dates: start: 20150404
  6. PROGRAF [Suspect]
     Active Substance: TACROLIMUS\TACROLIMUS ANHYDROUS
     Indication: RENAL TRANSPLANT
     Dosage: 1.5 MG MORNING AND 1 MG EVENING, UNKNOWN FREQ.
     Route: 048
     Dates: start: 201202, end: 20150401

REACTIONS (9)
  - Menstruation irregular [Not Recovered/Not Resolved]
  - Haemorrhage [Recovered/Resolved]
  - Carbohydrate antigen 19-9 increased [Unknown]
  - Back pain [Recovered/Resolved]
  - Pain in extremity [Recovered/Resolved]
  - Influenza [Not Recovered/Not Resolved]
  - Asthenia [Not Recovered/Not Resolved]
  - Abdominal distension [Recovered/Resolved]
  - Alopecia [Recovered/Resolved]

NARRATIVE: CASE EVENT DATE: 2013
